FAERS Safety Report 8141396-7 (Version None)
Quarter: 2012Q1

REPORT INFORMATION
  Report Type: 
  Country: None (occurrence: None)
  Receive Date: 20120216
  Receipt Date: 20120210
  Transmission Date: 20120608
  Serious: Yes (Hospitalization)
  Sender: FDA-Public Use
  Company Number: PHHY2012JP012384

PATIENT
  Sex: Male
  Weight: 44 kg

DRUGS (23)
  1. ALISKIREN [Suspect]
     Dosage: 150 MG, UNK
     Route: 048
     Dates: start: 20100716, end: 20110501
  2. RENAGEL [Concomitant]
     Dosage: 4500 MG, UNK
     Route: 048
  3. LOCHOLEST [Concomitant]
     Dosage: 20 MG, UNK
     Route: 048
  4. OXAROL [Concomitant]
     Dosage: UNK
     Route: 042
     Dates: start: 20100320, end: 20100717
  5. ALISKIREN [Suspect]
     Dosage: 150 MG, UNK
     Route: 048
     Dates: start: 20110622
  6. RENAGEL [Concomitant]
     Dosage: 6 G, UNK
     Route: 048
     Dates: end: 20110503
  7. CANDESARTAN CILEXETIL [Concomitant]
     Indication: HYPERTENSION
     Dosage: 4 MG
     Route: 048
  8. DOXAZOSIN MESYLATE [Concomitant]
     Dosage: 4MG, 2  MG
     Route: 048
  9. ALLOPURINOL [Concomitant]
     Dosage: 50 MG, UNK
     Route: 048
  10. SPELEAR [Concomitant]
     Dosage: 1200 MG, UNK
     Route: 048
     Dates: start: 20110621
  11. CALCIUM CARBONATE [Concomitant]
     Dosage: 200 MG, UNK
     Route: 048
  12. CANDESARTAN CILEXETIL [Concomitant]
     Dosage: 8 MG, UNK
  13. LANSOPRAZOLE [Concomitant]
     Indication: PROPHYLAXIS
     Dosage: 15 MG, UNK
     Route: 048
  14. DAREN [Concomitant]
     Dosage: 2 MG, UNK
     Route: 048
     Dates: end: 20110503
  15. SINGULAIR [Concomitant]
     Dosage: 10 MG, UNK
     Route: 048
     Dates: start: 20110621
  16. REMITCH [Concomitant]
     Dosage: 2.5 UG, UNK
     Route: 048
  17. MUCODYNE [Concomitant]
     Dosage: 1500 MG, UNK
     Route: 048
     Dates: end: 20110503
  18. ASPIRIN [Concomitant]
     Dosage: 100 MG, UNK
     Route: 048
  19. CINACALCET HYDROCHLORIDE [Concomitant]
     Dosage: 50 MG, UNK
     Route: 048
  20. CANDESARTAN CILEXETIL [Concomitant]
     Dosage: 2 MG, UNK
  21. CANDESARTAN CILEXETIL [Concomitant]
     Dosage: 4 MG
  22. ALLOPURINOL [Concomitant]
     Dosage: 100 MG, UNK
     Route: 048
  23. HORNEL [Concomitant]
     Dosage: 0.3 UG, UNK
     Route: 048
     Dates: end: 20110504

REACTIONS (5)
  - RESPIRATORY FAILURE [None]
  - BLOOD CREATININE INCREASED [None]
  - BLOOD URIC ACID INCREASED [None]
  - DEPRESSED LEVEL OF CONSCIOUSNESS [None]
  - BLOOD UREA INCREASED [None]
